FAERS Safety Report 15243651 (Version 1)
Quarter: 2018Q3

REPORT INFORMATION
  Report Type: Spontaneous
  Country: US (occurrence: US)
  Receive Date: 20180806
  Receipt Date: 20180806
  Transmission Date: 20181010
  Serious: Yes (Death, Other)
  Sender: FDA-Public Use
  Company Number: US-ROCHE-2165101

PATIENT
  Age: 36 Year
  Sex: Male

DRUGS (1)
  1. TECENTRIQ [Suspect]
     Active Substance: ATEZOLIZUMAB
     Indication: BLADDER CANCER
     Dosage: ONGOING: NO
     Route: 065

REACTIONS (4)
  - Hepatotoxicity [Unknown]
  - Hepatic failure [Unknown]
  - Death [Fatal]
  - Neoplasm progression [Unknown]
